FAERS Safety Report 20063697 (Version 1)
Quarter: 2021Q4

REPORT INFORMATION
  Report Type: Spontaneous
  Country: US (occurrence: None)
  Receive Date: 20211111
  Receipt Date: 20211111
  Transmission Date: 20220303
  Serious: No
  Sender: FDA-Public Use
  Company Number: None

PATIENT
  Age: 58 Year
  Sex: Female
  Weight: 61.23 kg

DRUGS (1)
  1. ENBREL [Suspect]
     Active Substance: ETANERCEPT
     Indication: Psoriasis
     Dosage: FREQUENCY : WEEKLY;? INJECT 50MG SUBCUTANEOUSLY ONCE  WEEKLY    AS DIRECTED
     Route: 058
     Dates: start: 202102

REACTIONS (3)
  - COVID-19 [None]
  - Immune system disorder [None]
  - Therapy interrupted [None]
